FAERS Safety Report 16998252 (Version 2)
Quarter: 2020Q1

REPORT INFORMATION
  Report Type: Spontaneous
  Country: US (occurrence: US)
  Receive Date: 20191106
  Receipt Date: 20200117
  Transmission Date: 20200409
  Serious: Yes (Hospitalization, Other)
  Sender: FDA-Public Use
  Company Number: US-GLAXOSMITHKLINE-US2019198523

PATIENT
  Age: 71 Year
  Sex: Male
  Weight: 76.19 kg

DRUGS (1)
  1. TRELEGY ELLIPTA [Suspect]
     Active Substance: FLUTICASONE FUROATE\UMECLIDINIUM BROMIDE\VILANTEROL TRIFENATATE
     Indication: CHRONIC OBSTRUCTIVE PULMONARY DISEASE
     Dosage: UNK, QD
     Route: 065
     Dates: start: 201909

REACTIONS (11)
  - Encephalopathy [Recovered/Resolved with Sequelae]
  - Pyrexia [Unknown]
  - Movement disorder [Recovered/Resolved]
  - Amnesia [Not Recovered/Not Resolved]
  - Propulsive gait [Unknown]
  - Pancytopenia [Not Recovered/Not Resolved]
  - Neutropenia [Unknown]
  - Anaemia [Unknown]
  - Thrombocytopenia [Unknown]
  - Asthenia [Unknown]
  - Hypokalaemia [Recovered/Resolved]

NARRATIVE: CASE EVENT DATE: 20191029
